FAERS Safety Report 20632324 (Version 1)
Quarter: 2022Q1

REPORT INFORMATION
  Report Type: Spontaneous
  Country: ES (occurrence: ES)
  Receive Date: 20220324
  Receipt Date: 20220324
  Transmission Date: 20220424
  Serious: Yes (Death, Hospitalization)
  Sender: FDA-Public Use
  Company Number: None

PATIENT
  Age: 76 Year
  Sex: Female
  Weight: 74 kg

DRUGS (16)
  1. ENTRESTO [Suspect]
     Active Substance: SACUBITRIL\VALSARTAN
     Indication: Cardiac failure chronic
     Dosage: 1 DOSAGE FORM, Q12H
     Route: 065
     Dates: start: 20190812, end: 20200611
  2. ENTRESTO [Suspect]
     Active Substance: SACUBITRIL\VALSARTAN
     Dosage: 1 DOSAGE FORM, Q12H (97/103 MG)
     Route: 065
     Dates: start: 20200611
  3. LEVOTHYROXINE SODIUM [Concomitant]
     Active Substance: LEVOTHYROXINE SODIUM
     Indication: Hypothyroidism
     Dosage: 1 COMPRIMIDO CADA D?A
     Route: 065
  4. CALCIUM POLYSTYRENE SULFONATE [Concomitant]
     Active Substance: CALCIUM POLYSTYRENE SULFONATE
     Indication: Cardiac failure
     Dosage: 1 SOBRE CADA 12 HORAS
     Route: 065
  5. TRYPTIZOL [Concomitant]
     Active Substance: AMITRIPTYLINE HYDROCHLORIDE
     Indication: Insomnia
     Dosage: 1 DOSAGE FORM, EACH DAY
     Route: 065
     Dates: start: 20180705
  6. CLOPIDOGREL [Concomitant]
     Active Substance: CLOPIDOGREL BISULFATE
     Indication: Acute myocardial infarction
     Dosage: 1 COMPRIMIDO EN LA COMIDA
     Route: 065
  7. FUROSEMIDE [Concomitant]
     Active Substance: FUROSEMIDE
     Indication: Cardiac failure
     Dosage: UNK
     Route: 065
     Dates: start: 20190627
  8. BISOPROLOL [Concomitant]
     Active Substance: BISOPROLOL
     Indication: Product used for unknown indication
     Dosage: 1 COMPRIMIDO POR LA MANANA
     Route: 065
     Dates: start: 20190627
  9. CALCIFEDIOL [Concomitant]
     Active Substance: CALCIFEDIOL
     Indication: Product used for unknown indication
     Dosage: 1 CAPSULA CADA 30 D?AS
     Route: 065
     Dates: start: 20200217
  10. FEBUXOSTAT [Concomitant]
     Active Substance: FEBUXOSTAT
     Indication: Hyperuricaemia
     Dosage: 1 COMPRIMIDO CADA 2 D?AS
     Route: 065
     Dates: start: 20200306
  11. URSOBILANE [Concomitant]
     Indication: Biliary cirrhosis
     Dosage: 1 CAPSULA CADA 12 HORAS
     Route: 065
     Dates: start: 20191203
  12. DAPAGLIFLOZIN [Concomitant]
     Active Substance: DAPAGLIFLOZIN
     Indication: Cardiac failure
     Dosage: 1 COMPRIMIDO CADA D?A
     Route: 065
     Dates: start: 20200522
  13. ATORVASTATIN [Concomitant]
     Active Substance: ATORVASTATIN
     Indication: Hypercholesterolaemia
     Dosage: 1 COMPRIMIDO CADA D?A
     Route: 065
     Dates: start: 20180719
  14. NEUPRO [Concomitant]
     Active Substance: ROTIGOTINE
     Indication: Restless legs syndrome
     Dosage: 1 PARCHE TRANSDERMICO CADA D?A
     Route: 065
     Dates: start: 20170516
  15. CARVEDILOL [Concomitant]
     Active Substance: CARVEDILOL
     Indication: Cardiac failure
     Dosage: 1 COMPRIMIDO CADA 12 HORAS
     Route: 065
     Dates: start: 20200527
  16. LINAGLIPTIN [Concomitant]
     Active Substance: LINAGLIPTIN
     Indication: Diabetes mellitus
     Dosage: 1 COMPRIMIDO CADA D?A
     Route: 065

REACTIONS (4)
  - Hyperkalaemia [Fatal]
  - Creatinine renal clearance decreased [Fatal]
  - Chronic kidney disease [Fatal]
  - Urinary tract infection [Fatal]

NARRATIVE: CASE EVENT DATE: 20200728
